FAERS Safety Report 9830011 (Version 3)
Quarter: 2014Q3

REPORT INFORMATION
  Report Type: Spontaneous
  Country: US (occurrence: US)
  Receive Date: 20140120
  Receipt Date: 20140822
  Transmission Date: 20150326
  Serious: Yes (Hospitalization, Other)
  Sender: FDA-Public Use
  Company Number: US-009507513-1401USA006947

PATIENT
  Sex: Female

DRUGS (1)
  1. NUVARING [Suspect]
     Active Substance: ETHINYL ESTRADIOL\ETONOGESTREL
     Indication: CONTRACEPTION
     Dosage: 0.12 MG-0.015 MG/24 HR. INSERT ONE PER MONTH USE FOR 3 WEEKS THEN 1 WEEK OFF
     Route: 067
     Dates: start: 20100618, end: 20110222

REACTIONS (5)
  - Aphasia [Unknown]
  - Carotid artery dissection [Unknown]
  - Cerebrovascular accident [Unknown]
  - Vertebral artery dissection [Unknown]
  - Hemiparesis [Unknown]

NARRATIVE: CASE EVENT DATE: 20110311
